FAERS Safety Report 20850233 (Version 1)
Quarter: 2022Q2

REPORT INFORMATION
  Report Type: Spontaneous
  Country: US (occurrence: None)
  Receive Date: 20220518
  Receipt Date: 20220518
  Transmission Date: 20220721
  Serious: No
  Sender: FDA-Public Use
  Company Number: None

PATIENT
  Age: 49 Year
  Sex: Female
  Weight: 90 kg

DRUGS (2)
  1. SULFACETAMIDE SODIUM [Suspect]
     Active Substance: SULFACETAMIDE SODIUM
     Indication: Eye infection
     Dosage: OTHER QUANTITY : 15 DROP(S);?FREQUENCY : 4 TIMES A DAY;?
     Route: 047
     Dates: start: 20220509, end: 20220511
  2. HYZAAR/HCT [Concomitant]

REACTIONS (2)
  - Thermal burns of eye [None]
  - Skin discolouration [None]

NARRATIVE: CASE EVENT DATE: 20220511
